FAERS Safety Report 5141155-3 (Version None)
Quarter: 2006Q4

REPORT INFORMATION
  Report Type: 
  Country: None (occurrence: None)
  Receive Date: 20061026
  Receipt Date: 20061010
  Transmission Date: 20070319
  Serious: Yes (Hospitalization)
  Sender: FDA-Public Use
  Company Number: JP-2006-030239

PATIENT
  Age: 55 Year
  Sex: Male

DRUGS (1)
  1. BETAFERON(INTERFERON BETA - 1B) INJECTION, 250UG [Suspect]
     Indication: MULTIPLE SCLEROSIS
     Dosage: SUBCUTANEOUS
     Route: 058
     Dates: start: 20051020

REACTIONS (1)
  - CEREBRAL INFARCTION [None]
